FAERS Safety Report 9149358 (Version 1)
Quarter: 2013Q1

REPORT INFORMATION
  Report Type: Spontaneous
  Country: US (occurrence: None)
  Receive Date: 20130228
  Receipt Date: 20130228
  Transmission Date: 20140127
  Serious: No
  Sender: FDA-Public Use
  Company Number: None

PATIENT
  Sex: Male
  Weight: 105.3 kg

DRUGS (1)
  1. PACLITAXEL (TAXOL) [Suspect]
     Dates: start: 20120927, end: 20130207

REACTIONS (7)
  - Haematemesis [None]
  - Diarrhoea [None]
  - Loss of consciousness [None]
  - Anaemia [None]
  - Hypotension [None]
  - Ventricular tachycardia [None]
  - Gastric perforation [None]
